FAERS Safety Report 7126835-2 (Version None)
Quarter: 2010Q4

REPORT INFORMATION
  Report Type: 
  Country: None (occurrence: None)
  Receive Date: 20101129
  Receipt Date: 20091118
  Transmission Date: 20110411
  Serious: No
  Sender: FDA-Public Use
  Company Number: US-PFIZER INC-2009300259

PATIENT
  Sex: Male
  Weight: 90.7 kg

DRUGS (6)
  1. VIAGRA [Suspect]
     Indication: ERECTILE DYSFUNCTION
     Dosage: 100 MG, AS NEEDED
     Route: 048
     Dates: start: 19990101
  2. DIGOXIN [Concomitant]
     Indication: CARDIAC DISORDER
     Dosage: 0.25 MG, 1X/DAY
     Route: 048
  3. NORVASC [Concomitant]
     Indication: CARDIAC DISORDER
     Dosage: 2.5 MG, 1X/DAY
     Route: 048
  4. WARFARIN SODIUM [Concomitant]
     Indication: CARDIAC DISORDER
     Dosage: 2.5 MG, 1X/DAY
     Route: 048
  5. PRAVACHOL [Concomitant]
     Indication: CARDIAC DISORDER
     Dosage: 40 MG, 1X/DAY
     Route: 048
  6. TOPROL-XL [Concomitant]
     Indication: CARDIAC DISORDER
     Dosage: 25 MG, 1X/DAY
     Route: 048

REACTIONS (1)
  - DRUG INEFFECTIVE [None]
